FAERS Safety Report 11147719 (Version 1)
Quarter: 2015Q2

REPORT INFORMATION
  Report Type: Spontaneous
  Country: GB (occurrence: GB)
  Receive Date: 20150529
  Receipt Date: 20150529
  Transmission Date: 20150821
  Serious: Yes (Hospitalization)
  Sender: FDA-Public Use
  Company Number: GB-PFIZER INC-2015170069

PATIENT
  Age: 74 Year
  Sex: Male
  Weight: 59 kg

DRUGS (8)
  1. CISPLATIN. [Suspect]
     Active Substance: CISPLATIN
     Indication: GASTRIC CANCER
     Dosage: 100 MG, UNK
     Route: 042
     Dates: start: 20130527
  2. EPIRUBICIN HCL [Suspect]
     Active Substance: EPIRUBICIN HYDROCHLORIDE
     Indication: GASTRIC CANCER
     Dosage: 80 MG, UNK
     Route: 042
     Dates: start: 20130527
  3. EPIRUBICIN HCL [Suspect]
     Active Substance: EPIRUBICIN HYDROCHLORIDE
     Dosage: 80 MG, UNK
     Route: 042
     Dates: start: 20130708
  4. CISPLATIN. [Suspect]
     Active Substance: CISPLATIN
     Dosage: 100 MG, UNK
     Route: 042
     Dates: start: 20130708
  5. AVASTIN [Suspect]
     Active Substance: BEVACIZUMAB
     Dosage: 425 MG, UNK
     Route: 042
     Dates: start: 20130708
  6. XELODA [Suspect]
     Active Substance: CAPECITABINE
     Indication: GASTRIC CANCER
     Dosage: 2150 MG, UNK
     Route: 048
     Dates: start: 20130527
  7. XELODA [Suspect]
     Active Substance: CAPECITABINE
     Dosage: 2150 MG, UNK
     Route: 048
     Dates: start: 20130711
  8. AVASTIN [Suspect]
     Active Substance: BEVACIZUMAB
     Indication: GASTRIC CANCER
     Dosage: 425 MG, UNK
     Route: 042
     Dates: start: 20130527

REACTIONS (3)
  - Diarrhoea [Recovered/Resolved with Sequelae]
  - Neutropenia [Unknown]
  - Acute kidney injury [Unknown]

NARRATIVE: CASE EVENT DATE: 20130712
